FAERS Safety Report 20859842 (Version 6)
Quarter: 2024Q1

REPORT INFORMATION
  Report Type: Spontaneous
  Country: US (occurrence: US)
  Receive Date: 20220523
  Receipt Date: 20240105
  Transmission Date: 20240410
  Serious: No
  Sender: FDA-Public Use
  Company Number: US-PFIZER INC-202100923679

PATIENT
  Age: 10 Year
  Sex: Female
  Weight: 42.63 kg

DRUGS (3)
  1. GENOTROPIN [Suspect]
     Active Substance: SOMATROPIN
     Indication: Short stature
     Dosage: 1.5 MG, DAILY
  2. GENOTROPIN [Suspect]
     Active Substance: SOMATROPIN
     Dosage: 1.8 MG, NIGHTLY
     Dates: start: 20210831
  3. GENOTROPIN [Suspect]
     Active Substance: SOMATROPIN
     Dosage: 1.6 MG, 1X/DAY

REACTIONS (5)
  - Drug dose omission by device [Unknown]
  - Product storage error [Unknown]
  - Device leakage [Unknown]
  - Device information output issue [Unknown]
  - Product prescribing error [Unknown]
